FAERS Safety Report 25468334 (Version 2)
Quarter: 2025Q2

REPORT INFORMATION
  Report Type: Report from Study
  Country: CA (occurrence: CA)
  Receive Date: 20250623
  Receipt Date: 20250630
  Transmission Date: 20250717
  Serious: Yes (Death)
  Sender: OTSUKA
  Company Number: CA-MMM-Otsuka-VUTLJDNZ

PATIENT
  Sex: Male

DRUGS (1)
  1. ARIPIPRAZOLE [Suspect]
     Active Substance: ARIPIPRAZOLE
     Indication: Product used for unknown indication
     Route: 030

REACTIONS (1)
  - Death [Fatal]
